FAERS Safety Report 5493256-8 (Version None)
Quarter: 2007Q4

REPORT INFORMATION
  Report Type: 
  Country: None (occurrence: None)
  Receive Date: 20071022
  Receipt Date: 20071022
  Transmission Date: 20080405
  Serious: Yes (Other)
  Sender: FDA-Public Use
  Company Number: None

PATIENT
  Age: 44 Year
  Sex: Female
  Weight: 58.9676 kg

DRUGS (1)
  1. OPTIRAY 350 [Suspect]
     Indication: DYSPNOEA
     Dosage: 100CC 3.5CC/SEC IV
     Route: 042
     Dates: start: 20071005

REACTIONS (1)
  - URTICARIA [None]
